FAERS Safety Report 9611268 (Version 1)
Quarter: 2013Q4

REPORT INFORMATION
  Report Type: Report from Study
  Country: DE (occurrence: TR)
  Receive Date: 20131010
  Receipt Date: 20131010
  Transmission Date: 20140711
  Serious: Yes (Death)
  Sender: FDA-Public Use
  Company Number: DE-ACTELION-A-US2013-89652

PATIENT
  Age: 2 Year
  Sex: Male

DRUGS (1)
  1. VENTAVIS [Suspect]
     Indication: PULMONARY HYPERTENSION
     Dosage: 1 AMPULE
     Route: 048
     Dates: start: 20130117, end: 20131002

REACTIONS (3)
  - Death [Fatal]
  - Off label use [Unknown]
  - Incorrect route of drug administration [Unknown]
